FAERS Safety Report 8354209-5 (Version None)
Quarter: 2012Q2

REPORT INFORMATION
  Report Type: 
  Country: None (occurrence: None)
  Receive Date: 20120511
  Receipt Date: 20120503
  Transmission Date: 20120825
  Serious: Yes (Hospitalization)
  Sender: FDA-Public Use
  Company Number: US-ASTRAZENECA-2012SE28782

PATIENT
  Age: 83 Year
  Sex: Female

DRUGS (8)
  1. ASPIRIN [Concomitant]
  2. GABAPENTIN [Concomitant]
  3. SIMVASTATIN [Concomitant]
  4. PANTOPRAZOLE SODIUM [Concomitant]
  5. BRILINTA [Suspect]
     Route: 048
     Dates: start: 20120401
  6. HEPARIN [Concomitant]
     Dates: start: 20120425, end: 20120427
  7. SPIRONOLACTONE [Concomitant]
  8. CARVEDILOL [Concomitant]

REACTIONS (2)
  - PLATELET COUNT DECREASED [None]
  - CARDIAC FAILURE [None]
